FAERS Safety Report 9146042 (Version 2)
Quarter: 2013Q3

REPORT INFORMATION
  Report Type: Report from Study
  Country: MX (occurrence: MX)
  Receive Date: 20130307
  Receipt Date: 20130912
  Transmission Date: 20140515
  Serious: Yes (Hospitalization, Other)
  Sender: FDA-Public Use
  Company Number: PHHY2013MX021222

PATIENT
  Age: 79 Year
  Sex: Female

DRUGS (7)
  1. TRILEPTAL [Suspect]
     Indication: EPILEPSY
     Dosage: 2 DF, (DAILY)
     Route: 048
  2. TRILEPTAL [Suspect]
     Dosage: 2.5 DF, (DAILY)
     Route: 048
  3. TRILEPTAL [Suspect]
     Dosage: 3 DF, DAILY
     Route: 048
     Dates: start: 195009, end: 201308
  4. LOSARTAN [Concomitant]
     Indication: HYPERTENSION
     Dosage: 2 DF, UNK
  5. COMBIVENT [Concomitant]
     Indication: ASTHMA
     Dosage: 2 DF, UNK
  6. RISPERDAL [Concomitant]
     Indication: MENTAL IMPAIRMENT
     Dosage: 0.5 DF, (DAILY)
  7. TEOFILIN [Concomitant]
     Indication: ASTHMA
     Dosage: 1 UKN, (DALIY)
     Dates: start: 201301

REACTIONS (10)
  - Oesophageal ulcer [Recovering/Resolving]
  - Bronchopneumonia [Recovered/Resolved]
  - Anaemia [Recovered/Resolved]
  - Hypertension [Not Recovered/Not Resolved]
  - Mental disorder [Recovering/Resolving]
  - Depressed mood [Unknown]
  - Dyspepsia [Not Recovered/Not Resolved]
  - Ulcer [Not Recovered/Not Resolved]
  - Asthma [Not Recovered/Not Resolved]
  - Petit mal epilepsy [Recovering/Resolving]
